FAERS Safety Report 7952105 (Version 10)
Quarter: 2013Q3

REPORT INFORMATION
  Report Type: Report from Study
  Country: KR (occurrence: KR)
  Receive Date: 20110519
  Receipt Date: 20130731
  Transmission Date: 20140515
  Serious: Yes (Hospitalization, Other)
  Sender: FDA-Public Use
  Company Number: PHHO2011KR08283

PATIENT
  Age: 53 Year
  Sex: Male
  Weight: 68 kg

DRUGS (5)
  1. AFINITOR [Suspect]
     Indication: T-CELL LYMPHOMA
     Dosage: 7.5 MG, DAILY
     Route: 048
     Dates: start: 20110502, end: 20110916
  2. CYCLOPHOSPHAMIDE [Suspect]
     Indication: T-CELL LYMPHOMA
     Dosage: 750 MG/M2, UNK
     Dates: start: 20110502
  3. VINCRISTINE [Suspect]
     Indication: T-CELL LYMPHOMA
     Dosage: 1.4 MG/M2, UNK
     Dates: start: 20110502
  4. PREDNISONE [Concomitant]
     Indication: T-CELL LYMPHOMA
     Dosage: 100 MG, QD
     Route: 048
     Dates: start: 20110502
  5. DOXORUBICIN [Concomitant]
     Indication: T-CELL LYMPHOMA
     Dosage: 50 MG/M2, UNK
     Dates: start: 20110502

REACTIONS (2)
  - Febrile neutropenia [Recovered/Resolved]
  - Thrombocytopenia [Recovered/Resolved]
